FAERS Safety Report 5384342-1 (Version None)
Quarter: 2007Q3

REPORT INFORMATION
  Report Type: 
  Country: None (occurrence: None)
  Receive Date: 20070710
  Receipt Date: 20060905
  Transmission Date: 20080115
  Serious: Yes (Other)
  Sender: FDA-Public Use
  Company Number: 2006-02311

PATIENT
  Age: 59 Year
  Sex: Female
  Weight: 49.4 kg

DRUGS (4)
  1. VELCADE [Suspect]
     Indication: NON-HODGKIN'S LYMPHOMA
     Dosage: 2.00 MG, INTRAVENOUS
     Route: 042
     Dates: start: 20060718, end: 20060726
  2. ALOXI (PAULLINA CUPANA) [Concomitant]
  3. PROCRIT [Concomitant]
  4. PREDNISOLONE [Concomitant]

REACTIONS (1)
  - HEPATIC ENZYME INCREASED [None]
